FAERS Safety Report 6107415-4 (Version None)
Quarter: 2009Q1

REPORT INFORMATION
  Report Type: 
  Country: None (occurrence: None)
  Receive Date: 20090227
  Receipt Date: 20080110
  Transmission Date: 20090719
  Serious: Yes (Other)
  Sender: FDA-Public Use
  Company Number: 161852USA

PATIENT
  Age: 60 Year
  Sex: Female
  Weight: 117.9352 kg

DRUGS (1)
  1. METFORMIN HYDROCHLORIDE [Suspect]
     Dosage: 2000MG (1000MG, 2 IN 1 D) ORAL
     Route: 048

REACTIONS (1)
  - ACIDOSIS [None]
